FAERS Safety Report 16744359 (Version 4)
Quarter: 2021Q3

REPORT INFORMATION
  Report Type: Spontaneous
  Country: ES (occurrence: ES)
  Receive Date: 20190827
  Receipt Date: 20210809
  Transmission Date: 20211014
  Serious: Yes (Death, Life-Threatening, Hospitalization, Other)
  Sender: FDA-Public Use
  Company Number: ES-AUROBINDO-AUR-APL-2019-056432

PATIENT
  Age: 60 Year
  Sex: Male

DRUGS (12)
  1. AMOXICILLIN+CLAVULANIC ACID [Suspect]
     Active Substance: AMOXICILLIN\CLAVULANIC ACID
     Indication: HYPOPHARYNGEAL CANCER
  2. SIMVASTATIN. [Concomitant]
     Active Substance: SIMVASTATIN
     Indication: DYSLIPIDAEMIA
     Dosage: UNK
     Route: 065
  3. CISATRACURIUM. [Suspect]
     Active Substance: CISATRACURIUM
     Indication: GENERAL ANAESTHESIA
  4. AMOXICILLIN+CLAVULANIC ACID [Suspect]
     Active Substance: AMOXICILLIN\CLAVULANIC ACID
     Indication: ANTIBIOTIC PROPHYLAXIS
  5. DEXKETOPROFEN [Suspect]
     Active Substance: DEXKETOPROFEN
     Indication: NEOPLASM
     Dosage: UNK
     Route: 065
  6. FENTANEST [Suspect]
     Active Substance: FENTANYL CITRATE
     Indication: GENERAL ANAESTHESIA
     Dosage: UNK
     Route: 065
  7. REMIFENTANIL [Suspect]
     Active Substance: REMIFENTANIL
     Indication: GENERAL ANAESTHESIA
     Dosage: UNK
     Route: 041
  8. PROPOFOL. [Suspect]
     Active Substance: PROPOFOL
     Indication: GENERAL ANAESTHESIA
     Dosage: UNK
     Route: 065
  9. AMOXICILLIN+CLAVULANIC ACID [Suspect]
     Active Substance: AMOXICILLIN\CLAVULANIC ACID
     Indication: NEOPLASM
     Dosage: UNK
     Route: 042
  10. PARACETAMOL [Suspect]
     Active Substance: ACETAMINOPHEN
     Indication: NEOPLASM
     Dosage: UNK
     Route: 065
  11. ROCURONIUM [Suspect]
     Active Substance: ROCURONIUM BROMIDE
     Indication: GENERAL ANAESTHESIA
     Dosage: UNK
     Route: 065
  12. SEVOFLURANE. [Suspect]
     Active Substance: SEVOFLURANE
     Indication: GENERAL ANAESTHESIA
     Dosage: UNK
     Route: 065

REACTIONS (25)
  - Hypoxic-ischaemic encephalopathy [Fatal]
  - Bradycardia [Recovered/Resolved]
  - Ventricular fibrillation [Recovered/Resolved]
  - Kounis syndrome [Recovered/Resolved]
  - Circulatory collapse [Recovered/Resolved]
  - Pulmonary oedema [Unknown]
  - Hypotension [Recovered/Resolved]
  - Dyskinesia [Recovered/Resolved]
  - Bronchospasm [Unknown]
  - Anaphylactic shock [Recovered/Resolved]
  - Coronary artery embolism [Recovered/Resolved]
  - Troponin increased [Unknown]
  - Anaphylactic reaction [Recovered/Resolved]
  - Brain injury [Unknown]
  - Cerebral hypoperfusion [Unknown]
  - Electrocardiogram ST segment elevation [Recovered/Resolved]
  - Cardiac arrest [Recovered/Resolved]
  - Atrioventricular dissociation [Recovered/Resolved]
  - Atrioventricular block [Recovered/Resolved]
  - Electrocardiogram QRS complex prolonged [Recovered/Resolved]
  - Ventricular dyskinesia [Recovered/Resolved]
  - Ventricular tachycardia [Recovered/Resolved]
  - Drug hypersensitivity [Recovered/Resolved]
  - Atrioventricular block second degree [Recovered/Resolved]
  - Acute coronary syndrome [Recovered/Resolved]
